FAERS Safety Report 6237753-6 (Version None)
Quarter: 2009Q2

REPORT INFORMATION
  Report Type: 
  Country: None (occurrence: None)
  Receive Date: 20090618
  Receipt Date: 20090605
  Transmission Date: 20091009
  Serious: Yes (Death)
  Sender: FDA-Public Use
  Company Number: KV200900656

PATIENT
  Age: 63 Year
  Sex: Female

DRUGS (2)
  1. OXYCODONE HCL [Suspect]
     Indication: PAIN
     Dosage: Q4-6 HRS, ORAL
     Route: 048
     Dates: end: 20090227
  2. OXYCONTIN [Concomitant]

REACTIONS (1)
  - MALIGNANT MELANOMA [None]
